FAERS Safety Report 7713671-9 (Version None)
Quarter: 2011Q3

REPORT INFORMATION
  Report Type: 
  Country: None (occurrence: None)
  Receive Date: 20110826
  Receipt Date: 20110823
  Transmission Date: 20111222
  Serious: Yes (Life-Threatening, Other)
  Sender: FDA-Public Use
  Company Number: MW-ABBOTT-11P-100-0848680-00

PATIENT
  Age: 20 Year
  Sex: Female
  Weight: 39.4 kg

DRUGS (3)
  1. LOPINAVIR/RITONAVIR [Suspect]
     Indication: PROPHYLAXIS AGAINST HIV INFECTION
     Dosage: 400MG/100MG
     Route: 048
     Dates: start: 20100114, end: 20100412
  2. COMBIVIR [Concomitant]
     Indication: PROPHYLAXIS AGAINST HIV INFECTION
     Dosage: 300MG/150MG
     Route: 048
     Dates: start: 20100114, end: 20100412
  3. COTRIMAXAZOLE [Concomitant]
     Indication: PRODUCT USED FOR UNKNOWN INDICATION

REACTIONS (2)
  - MALARIA [None]
  - PLATELET COUNT DECREASED [None]
